FAERS Safety Report 4273947-7 (Version None)
Quarter: 2004Q1

REPORT INFORMATION
  Report Type: 
  Country: None (occurrence: None)
  Receive Date: 20040115
  Receipt Date: 20040109
  Transmission Date: 20041129
  Serious: Yes (Other)
  Sender: FDA-Public Use
  Company Number: US-JNJFOC-2004101708

PATIENT
  Age: 44 Year
  Sex: Female

DRUGS (2)
  1. DURAGESIC [Suspect]
     Indication: PAIN
     Dosage: 75 UG/HR, 1 IN 48 HOUR, TRANSDERMAL
     Route: 062
     Dates: start: 20010101
  2. MANY UNSPECIFIED MEDICATIONS (ALL OTHER THERAPEUTIC PRODUCTS) [Concomitant]

REACTIONS (2)
  - HEADACHE [None]
  - HYPERTENSION [None]
